FAERS Safety Report 8707992 (Version 3)
Quarter: 2012Q4

REPORT INFORMATION
  Report Type: 
  Country: US (occurrence: US)
  Receive Date: 20120806
  Receipt Date: 20121206
  Transmission Date: 20130627
  Serious: Yes (Other)
  Sender: FDA-Public Use
  Company Number: US-PFIZER INC-2012185918

PATIENT
  Age: 61 Year
  Sex: Female

DRUGS (33)
  1. REVATIO [Suspect]
     Indication: PULMONARY ARTERIAL HYPERTENSION
     Dosage: 20 mg, 3x/day
     Route: 048
     Dates: start: 20101214
  2. OCUVITE [Concomitant]
     Dosage: UNK
  3. VITAMIN D3 [Concomitant]
     Dosage: UNK
  4. HYDROCHLOROTHIAZIDE/LOSARTAN [Concomitant]
     Dosage: UNK
  5. TYLENOL [Concomitant]
     Dosage: UNK
  6. WELLBUTRIN [Concomitant]
     Dosage: UNK
  7. CALCIUM WITH VITAMIN D [Concomitant]
     Dosage: UNK
  8. FLEXERIL [Concomitant]
     Dosage: UNK
  9. PRADAXA [Concomitant]
     Dosage: UNK
  10. DOCUSATE [Concomitant]
     Dosage: UNK
  11. NEXIUM [Concomitant]
     Dosage: UNK
  12. FAMVIR [Concomitant]
     Dosage: UNK
  13. TRICOR [Concomitant]
     Dosage: UNK
  14. ALLEGRA [Concomitant]
     Dosage: UNK
  15. FLECAINIDE [Concomitant]
     Dosage: UNK
  16. LASIX [Concomitant]
     Dosage: UNK
  17. GABAPENTIN [Concomitant]
     Dosage: UNK
  18. GLUCOSAMINE [Concomitant]
     Dosage: UNK
  19. NOVOLOG [Concomitant]
     Dosage: UNK
  20. SYNTHROID [Concomitant]
     Dosage: UNK
  21. BYSTOLIC [Concomitant]
     Dosage: UNK
  22. NIACIN [Concomitant]
     Dosage: UNK
  23. PRAVASTATIN [Concomitant]
     Dosage: UNK
  24. ALDACTONE [Concomitant]
     Dosage: UNK
  25. VERAPAMIL [Concomitant]
     Dosage: UNK
  26. POTASSIUM [Concomitant]
     Dosage: UNK
  27. MULTIVITAMINS [Concomitant]
  28. K-DUR [Concomitant]
  29. NEURONTIN [Concomitant]
  30. VIT D [Concomitant]
  31. MVI [Concomitant]
  32. COZAAR HCT [Concomitant]
  33. VICODIN [Concomitant]

REACTIONS (2)
  - Right ventricular systolic pressure increased [Recovered/Resolved]
  - Drug ineffective [Unknown]
